FAERS Safety Report 7351320-2 (Version None)
Quarter: 2011Q1

REPORT INFORMATION
  Report Type: 
  Country: None (occurrence: None)
  Receive Date: 20110314
  Receipt Date: 20110228
  Transmission Date: 20110831
  Serious: Yes (Hospitalization)
  Sender: FDA-Public Use
  Company Number: PHHY2010JP85310

PATIENT
  Sex: Male
  Weight: 57 kg

DRUGS (12)
  1. SLOW-K [Concomitant]
     Indication: HYPOKALAEMIA
     Dosage: UNK
     Route: 048
     Dates: end: 20101227
  2. OLMETEC [Concomitant]
     Indication: HYPERTENSION
     Dosage: UNK
     Route: 048
  3. RASILEZ [Suspect]
     Indication: HYPERTENSION
     Dosage: 150 MG DAILY
     Route: 048
     Dates: start: 20101002
  4. MIYA-BM [Concomitant]
     Indication: ENTEROCOLITIS
     Dosage: UNK
     Route: 048
  5. LIMAPROST [Concomitant]
  6. BAYCARON [Suspect]
     Indication: HYPERTENSION
     Dosage: 12.5 MG, UNK
     Route: 048
     Dates: end: 20101227
  7. COMESGEN [Concomitant]
     Indication: NEUROPATHY PERIPHERAL
     Dosage: 1500 UNK, UNK
     Route: 048
  8. CARDENALIN [Concomitant]
     Indication: HYPERTENSION
     Dosage: UNK
     Route: 048
  9. NIFEDIPINE [Concomitant]
     Indication: HYPERTENSION
     Dosage: UNK
     Route: 048
  10. EPLERENONE [Concomitant]
     Indication: HYPERTENSION
     Dosage: UNK
  11. EPERISONE HYDROCHLORIDE [Concomitant]
  12. ATENOLOL [Concomitant]
     Indication: HYPERTENSION
     Dosage: UNK
     Route: 048

REACTIONS (2)
  - DYSPNOEA [None]
  - INTERSTITIAL LUNG DISEASE [None]
